FAERS Safety Report 5455734-7 (Version None)
Quarter: 2007Q3

REPORT INFORMATION
  Report Type: 
  Country: None (occurrence: None)
  Receive Date: 20070917
  Receipt Date: 20070917
  Transmission Date: 20080115
  Serious: No
  Sender: FDA-Public Use
  Company Number: None

PATIENT
  Sex: Female
  Weight: 46.2669 kg

DRUGS (1)
  1. BUPROPION HCL [Suspect]
     Indication: DEPRESSION
     Dosage: 300 MG  ONCE DAILY  PO
     Route: 048
     Dates: start: 20070127, end: 20070914

REACTIONS (7)
  - ANXIETY [None]
  - DRUG INEFFECTIVE [None]
  - FEELINGS OF WORTHLESSNESS [None]
  - PHARMACEUTICAL PRODUCT COMPLAINT [None]
  - PSYCHIATRIC SYMPTOM [None]
  - SPEECH DISORDER [None]
  - SUICIDAL IDEATION [None]
